FAERS Safety Report 6206080-5 (Version None)
Quarter: 2009Q2

REPORT INFORMATION
  Report Type: 
  Country: None (occurrence: None)
  Receive Date: 20090526
  Receipt Date: 20090508
  Transmission Date: 20091009
  Serious: Yes (Hospitalization)
  Sender: FDA-Public Use
  Company Number: GXKR2009US05593

PATIENT
  Age: 85 Year
  Sex: Female

DRUGS (13)
  1. ACETYLSALICYLIC ACID SRT [Suspect]
  2. INDOMETHACIN [Suspect]
  3. PERPHENAZINE [Suspect]
  4. NAPROSYN [Suspect]
  5. ELAVIL [Suspect]
  6. BUSPAR [Suspect]
  7. REMERON [Suspect]
  8. LIBRAX [Suspect]
  9. PRILOSEC [Suspect]
  10. CARAFATE [Suspect]
  11. DETROL [Suspect]
  12. PROCARDIA XL [Suspect]
  13. ZYVOX [Suspect]

REACTIONS (12)
  - ASTHENIA [None]
  - CONFUSIONAL STATE [None]
  - DELIRIUM [None]
  - DISORIENTATION [None]
  - DRUG INTERACTION [None]
  - DYSARTHRIA [None]
  - FACIAL PARESIS [None]
  - MENTAL STATUS CHANGES [None]
  - POLYMEDICATION [None]
  - PYURIA [None]
  - RENAL FAILURE ACUTE [None]
  - URINARY TRACT INFECTION [None]
